FAERS Safety Report 9863932 (Version 2)
Quarter: 2014Q1

REPORT INFORMATION
  Report Type: Spontaneous
  Country: GB (occurrence: GB)
  Receive Date: 20140203
  Receipt Date: 20140204
  Transmission Date: 20141002
  Serious: No
  Sender: FDA-Public Use
  Company Number: PHFR2014GB001139

PATIENT
  Age: 46 Year
  Sex: Male

DRUGS (1)
  1. CLOZARIL [Suspect]
     Dosage: UNK
     Route: 048
     Dates: start: 20070604, end: 20140128

REACTIONS (2)
  - Nasopharyngitis [Recovering/Resolving]
  - Neutrophil count decreased [Recovered/Resolved]
